FAERS Safety Report 5798287-6 (Version None)
Quarter: 2008Q3

REPORT INFORMATION
  Report Type: 
  Country: None (occurrence: None)
  Receive Date: 20080702
  Receipt Date: 20080620
  Transmission Date: 20090109
  Serious: Yes (Hospitalization)
  Sender: FDA-Public Use
  Company Number: FR-WYE-H04426308

PATIENT
  Age: 55 Year
  Sex: Female

DRUGS (5)
  1. EFFEXOR [Suspect]
  2. ALENDRONATE SODIUM [Concomitant]
     Indication: OSTEOPOROSIS
  3. CALCIUM [Concomitant]
     Indication: OSTEOPOROSIS
  4. PROPRANOLOL [Interacting]
     Indication: GASTROINTESTINAL HAEMORRHAGE
  5. PROPRANOLOL [Interacting]
     Indication: VARICES OESOPHAGEAL

REACTIONS (5)
  - ACUTE RESPIRATORY FAILURE [None]
  - DRUG INTERACTION [None]
  - PNEUMONIA MYCOPLASMAL [None]
  - PNEUMONITIS [None]
  - PULMONARY TOXICITY [None]
